FAERS Safety Report 7171526-5 (Version None)
Quarter: 2010Q4

REPORT INFORMATION
  Report Type: 
  Country: None (occurrence: None)
  Receive Date: 20101217
  Receipt Date: 20101209
  Transmission Date: 20110411
  Serious: Yes (Hospitalization, Other)
  Sender: FDA-Public Use
  Company Number: US-SANOFI-AVENTIS-2010SA075138

PATIENT
  Age: 80 Year
  Sex: Female

DRUGS (2)
  1. APIDRA [Suspect]
     Indication: INSULIN-REQUIRING TYPE 2 DIABETES MELLITUS
     Dosage: SLIDING SCALE TWICE DAILY (MOST TIME)
     Route: 058
     Dates: start: 20080101
  2. OPTICLICK [Suspect]
     Indication: INSULIN-REQUIRING TYPE 2 DIABETES MELLITUS

REACTIONS (2)
  - CATARACT [None]
  - HYPERTENSION [None]
